FAERS Safety Report 5486745-3 (Version None)
Quarter: 2007Q4

REPORT INFORMATION
  Report Type: 
  Country: None (occurrence: None)
  Receive Date: 20071016
  Receipt Date: 20071008
  Transmission Date: 20080405
  Serious: Yes (Other)
  Sender: FDA-Public Use
  Company Number: US-AVENTIS-200619699US

PATIENT
  Sex: Female

DRUGS (10)
  1. KETEK [Suspect]
     Indication: PNEUMONIA
     Route: 048
     Dates: start: 20051108, end: 20051101
  2. KETEK [Suspect]
     Route: 048
     Dates: start: 20051203, end: 20051207
  3. KETEK [Suspect]
     Indication: BRONCHITIS
     Route: 048
     Dates: start: 20051108, end: 20051101
  4. KETEK [Suspect]
     Route: 048
     Dates: start: 20051203, end: 20051207
  5. MEDROL [Concomitant]
     Route: 030
     Dates: start: 20051108, end: 20051108
  6. ALBUTEROL [Concomitant]
     Dosage: DOSE: UNK
     Dates: start: 20051108
  7. VOSPIRE ER [Concomitant]
     Route: 048
     Dates: start: 20051108
  8. ADVAIR DISKUS 100/50 [Concomitant]
     Dosage: DOSE: 250/50 (1PUFF)
     Route: 055
     Dates: start: 20051108
  9. DELSYN ^NOS^ [Concomitant]
     Dosage: DOSE: UNK
     Dates: start: 20051108
  10. PENICILLIN G [Concomitant]
     Dosage: DOSE: 1 INJECTION
     Route: 051
     Dates: start: 20051108, end: 20051108

REACTIONS (8)
  - ALANINE AMINOTRANSFERASE INCREASED [None]
  - ASPARTATE AMINOTRANSFERASE INCREASED [None]
  - BLOOD ALKALINE PHOSPHATASE INCREASED [None]
  - FATIGUE [None]
  - HEPATITIS [None]
  - MALAISE [None]
  - PRURITUS [None]
  - PYREXIA [None]
